FAERS Safety Report 7888856-1 (Version None)
Quarter: 2011Q4

REPORT INFORMATION
  Report Type: 
  Country: None (occurrence: None)
  Receive Date: 20111102
  Receipt Date: 20111102
  Transmission Date: 20120403
  Serious: No
  Sender: FDA-Public Use
  Company Number: None

PATIENT
  Sex: Male
  Weight: 80.7403 kg

DRUGS (1)
  1. NEXAVAR [Suspect]
     Indication: HEPATIC NEOPLASM MALIGNANT
     Dosage: 400MG BID PO
     Route: 048
     Dates: start: 20111012, end: 20111024

REACTIONS (4)
  - PAIN IN EXTREMITY [None]
  - RASH [None]
  - HYPOAESTHESIA [None]
  - BLISTER [None]
